FAERS Safety Report 8400249 (Version 3)
Quarter: 2014Q4

REPORT INFORMATION
  Report Type: Spontaneous
  Country: US (occurrence: US)
  Receive Date: 20120210
  Receipt Date: 20141205
  Transmission Date: 20150529
  Serious: No
  Sender: FDA-Public Use
  Company Number: US-BRISTOL-MYERS SQUIBB COMPANY-16290181

PATIENT
  Age: 45 Year
  Sex: Female
  Weight: 82 kg

DRUGS (10)
  1. PLAQUENIL [Concomitant]
     Active Substance: HYDROXYCHLOROQUINE SULFATE
  2. ABATACEPT SUBQ INJECTION 125MG/ML [Suspect]
     Active Substance: ABATACEPT
     Indication: SJOGREN^S SYNDROME
     Dosage: NO OF INJ:6. 0,4 8 WEEKS?ONCE A MONTH, THEN TWICE A MONTH AND ONCE A WEEK
     Route: 058
     Dates: start: 20111211
  3. VICOPROFEN [Concomitant]
     Active Substance: HYDROCODONE BITARTRATE\IBUPROFEN
  4. CLONIDINE. [Concomitant]
     Active Substance: CLONIDINE
  5. OMEPRAZOLE. [Concomitant]
     Active Substance: OMEPRAZOLE
  6. SPIRIVA [Concomitant]
     Active Substance: TIOTROPIUM BROMIDE MONOHYDRATE
  7. IBUPROFEN. [Concomitant]
     Active Substance: IBUPROFEN
  8. LEXAPRO [Concomitant]
     Active Substance: ESCITALOPRAM OXALATE
  9. VITAMIN B12 [Concomitant]
     Active Substance: CYANOCOBALAMIN
     Indication: RHEUMATOID ARTHRITIS
  10. ABATACEPT SUBQ INJECTION 125MG/ML [Suspect]
     Active Substance: ABATACEPT
     Indication: RHEUMATOID ARTHRITIS
     Dosage: NO OF INJ:6. 0,4 8 WEEKS?ONCE A MONTH, THEN TWICE A MONTH AND ONCE A WEEK
     Route: 058
     Dates: start: 20111211

REACTIONS (7)
  - Product quality issue [Unknown]
  - Nausea [Not Recovered/Not Resolved]
  - Rheumatoid arthritis [Unknown]
  - Influenza like illness [Unknown]
  - Injection site reaction [Unknown]
  - Fatigue [Unknown]
  - Photosensitivity reaction [Unknown]
